FAERS Safety Report 10070370 (Version 2)
Quarter: 2014Q2

REPORT INFORMATION
  Report Type: Spontaneous
  Country: FR (occurrence: FR)
  Receive Date: 20140410
  Receipt Date: 20140422
  Transmission Date: 20141212
  Serious: Yes (Hospitalization)
  Sender: FDA-Public Use
  Company Number: FR-PFIZER INC-2014096563

PATIENT
  Age: 67 Year
  Sex: Male
  Weight: 66 kg

DRUGS (11)
  1. INSPRA [Suspect]
     Dosage: 25 MG, DAILY
     Route: 048
     Dates: start: 201101, end: 20140216
  2. TRIATEC [Interacting]
     Dosage: 10 MG, DAILY
     Route: 048
  3. ZYPREXA [Interacting]
     Dosage: 10 MG, DAILY
     Route: 048
     Dates: start: 2010
  4. DEPAKOTE [Interacting]
     Dosage: 1 G, DAILY
     Route: 048
     Dates: start: 2010
  5. INEXIUM [Interacting]
     Dosage: 20 MG, DAILY
     Route: 048
     Dates: start: 201101, end: 20140216
  6. TAHOR [Concomitant]
     Dosage: 80 MG, DAILY
     Route: 048
  7. KREDEX [Concomitant]
     Dosage: 50 MG, DAILY
     Route: 048
  8. PLAVIX [Concomitant]
     Dosage: 75 MG, DAILY
     Route: 048
  9. METFORMIN [Concomitant]
     Dosage: 3 G, DAILY
     Route: 048
  10. TARDYFERON [Concomitant]
     Dosage: 1 DF, DAILY
  11. UVEDOSE [Concomitant]
     Dosage: UNK

REACTIONS (2)
  - Hyponatraemia [Recovered/Resolved]
  - Drug interaction [Unknown]
